FAERS Safety Report 6217558-2 (Version None)
Quarter: 2009Q2

REPORT INFORMATION
  Report Type: 
  Country: None (occurrence: None)
  Receive Date: 20090608
  Receipt Date: 20090219
  Transmission Date: 20091009
  Serious: Yes (Disabling)
  Sender: FDA-Public Use
  Company Number: A0769513A

PATIENT
  Age: 74 Year
  Sex: Female

DRUGS (11)
  1. WELLBUTRIN XL [Suspect]
     Indication: DEPRESSION
     Dosage: 300MG TWICE PER DAY
     Route: 048
     Dates: start: 20080101
  2. ADVAIR HFA [Concomitant]
     Route: 055
  3. DIAZEPAM [Concomitant]
     Dosage: 2.5MG AS REQUIRED
  4. ASPIRIN [Concomitant]
     Dosage: 81MG PER DAY
  5. GLYBURIDE AND METFORMIN HCL [Concomitant]
  6. CHLORTHALIDONE [Concomitant]
     Dosage: 25MG PER DAY
  7. LIPITOR [Concomitant]
     Dosage: 80MG PER DAY
  8. COREG [Concomitant]
     Dosage: 3.125MG TWICE PER DAY
  9. PLAVIX [Concomitant]
  10. ZOLPIDEM TARTRATE [Concomitant]
     Dosage: 10MG AS REQUIRED
  11. OXYCODONE HCL AND ACETAMINOPHEN [Concomitant]

REACTIONS (1)
  - HYPERHIDROSIS [None]
